FAERS Safety Report 15906809 (Version 1)
Quarter: 2019Q1

REPORT INFORMATION
  Report Type: Spontaneous
  Country: US (occurrence: US)
  Receive Date: 20190204
  Receipt Date: 20190204
  Transmission Date: 20190417
  Serious: Yes (Life-Threatening, Hospitalization, Disabling)
  Sender: FDA-Public Use
  Company Number: None

PATIENT
  Age: 60 Year
  Sex: Male
  Weight: 82.8 kg

DRUGS (1)
  1. XTANDI [Suspect]
     Active Substance: ENZALUTAMIDE
     Indication: PROSTATE CANCER STAGE IV
     Dosage: ?          QUANTITY:4 CAPSULE(S);?
     Route: 048
     Dates: start: 20190126, end: 20190127

REACTIONS (8)
  - Blood pressure increased [None]
  - Feeding disorder [None]
  - Diarrhoea [None]
  - Dyspepsia [None]
  - Vomiting [None]
  - Heart rate increased [None]
  - Oesophageal pain [None]
  - Blood glucose increased [None]

NARRATIVE: CASE EVENT DATE: 20190128
